FAERS Safety Report 5895297-5 (Version None)
Quarter: 2008Q3

REPORT INFORMATION
  Report Type: 
  Country: None (occurrence: None)
  Receive Date: 20080924
  Receipt Date: 20080911
  Transmission Date: 20090109
  Serious: Yes (Other)
  Sender: FDA-Public Use
  Company Number: US-PFIZER INC-2008078293

PATIENT
  Sex: Female
  Weight: 86.4 kg

DRUGS (2)
  1. CHANTIX [Suspect]
     Indication: SMOKING CESSATION THERAPY
     Dates: start: 20080801, end: 20080901
  2. ANTI-ASTHMATICS [Concomitant]

REACTIONS (2)
  - BLISTER [None]
  - OROPHARYNGEAL BLISTERING [None]
